FAERS Safety Report 6371265-4 (Version None)
Quarter: 2009Q3

REPORT INFORMATION
  Report Type: 
  Country: None (occurrence: None)
  Receive Date: 20090923
  Receipt Date: 20070328
  Transmission Date: 20100115
  Serious: No
  Sender: FDA-Public Use
  Company Number: US-ASTRAZENECA-2007UW01569

PATIENT
  Age: 18464 Day
  Sex: Female
  Weight: 86.2 kg

DRUGS (25)
  1. SEROQUEL [Suspect]
     Indication: BIPOLAR DISORDER
     Dosage: 25 - 200MG
     Route: 048
     Dates: start: 20020604
  2. SEROQUEL [Suspect]
     Indication: POOR QUALITY SLEEP
     Dosage: 25 - 200MG
     Route: 048
     Dates: start: 20020604
  3. SEROQUEL [Suspect]
     Route: 048
     Dates: start: 20041107, end: 20060626
  4. SEROQUEL [Suspect]
     Route: 048
     Dates: start: 20041107, end: 20060626
  5. ZYPREXA [Concomitant]
     Indication: BIPOLAR DISORDER
     Dates: start: 20030801
  6. HALDOL [Concomitant]
     Dates: start: 20020501
  7. CYCLOBENZAPRINE HCL [Concomitant]
     Route: 048
  8. DIOVAN HCT [Concomitant]
     Route: 048
  9. GABAPENTIN [Concomitant]
     Route: 048
  10. WELLBUTRIN [Concomitant]
     Route: 048
  11. ZOLOFT [Concomitant]
     Route: 048
  12. MECLIZINE [Concomitant]
  13. MOTRIN [Concomitant]
  14. HYZAAR [Concomitant]
  15. NYSTATIN [Concomitant]
  16. HYDROCODONE [Concomitant]
  17. FLUCONAZOLE [Concomitant]
  18. NAPROXEN [Concomitant]
  19. GLIPIZIDE [Concomitant]
  20. PREMPRO [Concomitant]
  21. ALLEGRA D 24 HOUR [Concomitant]
  22. ACETAMINOPHEN [Concomitant]
  23. NEXIUM [Concomitant]
  24. VIOXX [Concomitant]
  25. LORATADINE [Concomitant]

REACTIONS (3)
  - CARPAL TUNNEL SYNDROME [None]
  - PHARYNGITIS STREPTOCOCCAL [None]
  - TYPE 2 DIABETES MELLITUS [None]
